FAERS Safety Report 8260972-4 (Version None)
Quarter: 2012Q2

REPORT INFORMATION
  Report Type: 
  Country: None (occurrence: None)
  Receive Date: 20120405
  Receipt Date: 20120402
  Transmission Date: 20120825
  Serious: No
  Sender: FDA-Public Use
  Company Number: US-PFIZER INC-2012083546

PATIENT
  Sex: Male
  Weight: 133.33 kg

DRUGS (7)
  1. XANAX [Suspect]
     Indication: NERVOUS SYSTEM DISORDER
     Dosage: 0.5 MG, 1X/DAY
     Route: 048
     Dates: end: 20120201
  2. CHANTIX [Suspect]
     Dosage: 1 MG, 2X/DAY
     Route: 048
     Dates: start: 20120101, end: 20120301
  3. CHANTIX [Suspect]
     Indication: SMOKING CESSATION THERAPY
     Dosage: 0.5 MG, 1X/DAY
     Route: 048
     Dates: start: 20120201, end: 20120101
  4. XANAX [Suspect]
     Indication: DEPRESSION
     Dosage: 1 MG, 1X/DAY
     Route: 048
     Dates: start: 20120201
  5. CHANTIX [Suspect]
     Dosage: 1 MG, 1X/DAY
     Route: 048
     Dates: start: 20120331, end: 20120401
  6. NORCO [Concomitant]
     Dosage: 10/325 MG, UNK
  7. ZANAFLEX [Concomitant]
     Indication: BACK PAIN
     Dosage: 0.5 MG, UNK

REACTIONS (6)
  - BACK PAIN [None]
  - NIGHTMARE [None]
  - DRUG INEFFECTIVE [None]
  - DEPRESSION [None]
  - ABNORMAL DREAMS [None]
  - INSOMNIA [None]
